FAERS Safety Report 7707502-0 (Version None)
Quarter: 2011Q3

REPORT INFORMATION
  Report Type: 
  Country: None (occurrence: None)
  Receive Date: 20110824
  Receipt Date: 20110812
  Transmission Date: 20111222
  Serious: Yes (Life-Threatening)
  Sender: FDA-Public Use
  Company Number: JP-CELGENEUS-087-21880-11021722

PATIENT
  Sex: Female

DRUGS (22)
  1. REVLIMID [Suspect]
     Dosage: 15 MILLIGRAM
     Route: 048
     Dates: start: 20110204, end: 20110601
  2. GLAKAY [Concomitant]
     Dosage: 3 CAPSULE
     Route: 048
     Dates: end: 20101119
  3. NEUROTROPIN [Concomitant]
     Dosage: 4 TABLET
     Route: 048
     Dates: end: 20101119
  4. PROCHLORPERAZINE [Concomitant]
     Indication: PROPHYLAXIS
     Dosage: 15 MILLIGRAM
     Route: 048
     Dates: end: 20110601
  5. SULFAMETHOXAZOLE [Concomitant]
     Indication: PROPHYLAXIS
     Dosage: 4 TABLET
     Route: 048
     Dates: end: 20110601
  6. OXYCONTIN [Concomitant]
     Dosage: 30 MILLIGRAM
     Route: 048
     Dates: end: 20101119
  7. DEXAMETHASONE [Suspect]
     Dosage: 12 MILLIGRAM
     Route: 048
     Dates: start: 20110204, end: 20110601
  8. OMEPRAZOLE [Concomitant]
     Indication: PROPHYLAXIS
     Dosage: 10 MILLIGRAM
     Route: 048
     Dates: end: 20110601
  9. ZOLPIDEM [Concomitant]
     Dosage: 5 MILLIGRAM
     Route: 048
     Dates: end: 20110601
  10. OXYCONTIN [Concomitant]
     Dosage: 20 MILLIGRAM
     Route: 048
     Dates: start: 20101118, end: 20110601
  11. SELBEX [Concomitant]
     Indication: PROPHYLAXIS
     Dosage: 150 MILLIGRAM
     Route: 048
     Dates: end: 20110601
  12. ZOMETA [Concomitant]
     Dosage: 4 MILLIGRAM
     Route: 041
     Dates: start: 20101118, end: 20110203
  13. DEXAMETHASONE [Suspect]
     Dosage: 12 MILLIGRAM
     Route: 048
     Dates: start: 20101118
  14. ZOVIRAX [Concomitant]
     Indication: PROPHYLAXIS
     Dosage: 200 MILLIGRAM
     Route: 048
     Dates: end: 20101119
  15. REVLIMID [Suspect]
     Dosage: 15 MILLIGRAM
     Route: 048
     Dates: start: 20101118, end: 20110203
  16. ASPIRIN [Concomitant]
     Indication: PROPHYLAXIS
     Dosage: 100 MILLIGRAM
     Route: 048
     Dates: start: 20101022, end: 20110601
  17. ZOMETA [Concomitant]
     Dosage: 4 MILLIGRAM
     Route: 041
     Dates: start: 20110204, end: 20110601
  18. DEXAMETHASONE [Suspect]
     Indication: MULTIPLE MYELOMA
     Dosage: 12 MILLIGRAM
     Route: 048
     Dates: start: 20101022, end: 20101112
  19. MYONAL [Concomitant]
     Dosage: 150 MILLIGRAM
     Route: 048
     Dates: end: 20101119
  20. DEPAS [Concomitant]
     Dosage: 1.5 MILLIGRAM
     Route: 048
     Dates: end: 20110601
  21. REVLIMID [Suspect]
     Indication: MULTIPLE MYELOMA
     Dosage: 15 MILLIGRAM
     Route: 048
     Dates: start: 20101022, end: 20101112
  22. ACETAMINOPHEN [Concomitant]
     Dosage: 1200 MILLIGRAM
     Route: 048
     Dates: start: 20101118, end: 20110601

REACTIONS (2)
  - MALAISE [None]
  - SEPSIS [None]
